FAERS Safety Report 19403242 (Version 1)
Quarter: 2021Q2

REPORT INFORMATION
  Report Type: Spontaneous
  Country: US (occurrence: US)
  Receive Date: 20210610
  Receipt Date: 20210610
  Transmission Date: 20210717
  Serious: Yes (Hospitalization)
  Sender: FDA-Public Use
  Company Number: None

PATIENT
  Age: 83 Year
  Sex: Female

DRUGS (18)
  1. LISINOPRIL. [Concomitant]
     Active Substance: LISINOPRIL
  2. PROGRAF [Concomitant]
     Active Substance: TACROLIMUS
  3. TRAMADOL. [Concomitant]
     Active Substance: TRAMADOL
  4. VICODIN [Concomitant]
     Active Substance: ACETAMINOPHEN\HYDROCODONE BITARTRATE
  5. MYCOPHENOLATE [Suspect]
     Active Substance: MYCOPHENOLIC ACID
     Indication: RENAL TRANSPLANT
     Route: 048
     Dates: start: 20190708
  6. FOLIC ACID. [Concomitant]
     Active Substance: FOLIC ACID
  7. CLAIRTIN [Concomitant]
  8. DOXYCYCL [Concomitant]
  9. ISOSOBRB [Concomitant]
  10. METOPROL TAR [Concomitant]
  11. NEURONTIN [Concomitant]
     Active Substance: GABAPENTIN
  12. FURSOMEMIDE [Concomitant]
  13. PLAVIX [Concomitant]
     Active Substance: CLOPIDOGREL BISULFATE
  14. CELLEPT [Concomitant]
  15. FISH OIL [Concomitant]
     Active Substance: FISH OIL
  16. LANTUS [Concomitant]
     Active Substance: INSULIN GLARGINE
  17. MAGOXIDE [Concomitant]
  18. XARELTO [Concomitant]
     Active Substance: RIVAROXABAN

REACTIONS (3)
  - Therapy interrupted [None]
  - Cerebral haemorrhage [None]
  - Transient ischaemic attack [None]

NARRATIVE: CASE EVENT DATE: 20210610
